FAERS Safety Report 12699548 (Version 1)
Quarter: 2016Q3

REPORT INFORMATION
  Report Type: Report from Study
  Country: BR (occurrence: BR)
  Receive Date: 20160830
  Receipt Date: 20160830
  Transmission Date: 20161109
  Serious: Yes (Other)
  Sender: FDA-Public Use
  Company Number: PHHY2016BR118230

PATIENT
  Sex: Male
  Weight: 93 kg

DRUGS (1)
  1. DIOVAN HCT [Suspect]
     Active Substance: HYDROCHLOROTHIAZIDE\VALSARTAN
     Indication: HYPERTENSION
     Dosage: 1 DF (VALSARTAN 160 MG, HYDROCHLOROTHIAZIDE 12.5), QD (WITH WATER IN THE MORNING)
     Route: 048

REACTIONS (5)
  - Malaise [Unknown]
  - Irritability [Unknown]
  - Memory impairment [Unknown]
  - Dementia Alzheimer^s type [Unknown]
  - Blood pressure increased [Unknown]
